FAERS Safety Report 19386708 (Version 1)
Quarter: 2021Q2

REPORT INFORMATION
  Report Type: Spontaneous
  Country: US (occurrence: US)
  Receive Date: 20210608
  Receipt Date: 20210608
  Transmission Date: 20210717
  Serious: No
  Sender: FDA-Public Use
  Company Number: US-SA-2021SA189612

PATIENT
  Age: 31 Year
  Sex: Male

DRUGS (1)
  1. FABRAZYME [Suspect]
     Active Substance: AGALSIDASE BETA
     Indication: FABRY^S DISEASE
     Dosage: 70 MG, QOW
     Route: 042
     Dates: start: 20200901, end: 202101

REACTIONS (2)
  - Exposure to SARS-CoV-2 [Unknown]
  - Quarantine [Unknown]

NARRATIVE: CASE EVENT DATE: 202101
